FAERS Safety Report 19800476 (Version 1)
Quarter: 2021Q3

REPORT INFORMATION
  Report Type: Spontaneous
  Country: US (occurrence: US)
  Receive Date: 20210907
  Receipt Date: 20210907
  Transmission Date: 20211014
  Serious: No
  Sender: FDA-Public Use
  Company Number: US-JUBILANT CADISTA PHARMACEUTICALS-2021JUB00190

PATIENT
  Sex: Male

DRUGS (2)
  1. TIZANIDINE. [Suspect]
     Active Substance: TIZANIDINE
     Dosage: UNK
  2. UNSPECIFIED MEDICATION(S) [Suspect]
     Active Substance: UNSPECIFIED INGREDIENT

REACTIONS (1)
  - Coeliac disease [Not Recovered/Not Resolved]
